FAERS Safety Report 19619354 (Version 1)
Quarter: 2021Q3

REPORT INFORMATION
  Report Type: Spontaneous
  Country: US (occurrence: US)
  Receive Date: 20210728
  Receipt Date: 20210728
  Transmission Date: 20211014
  Serious: No
  Sender: FDA-Public Use
  Company Number: US-ROCHE-2714757

PATIENT
  Sex: Female

DRUGS (3)
  1. IBRANCE [Concomitant]
     Active Substance: PALBOCICLIB
     Indication: BREAST CANCER METASTATIC
  2. ABRAXANE [Concomitant]
     Active Substance: PACLITAXEL
  3. XELODA [Suspect]
     Active Substance: CAPECITABINE
     Indication: PRODUCT USE IN UNAPPROVED INDICATION
     Route: 048

REACTIONS (1)
  - Neuropathy peripheral [Unknown]
